FAERS Safety Report 8618958-3 (Version None)
Quarter: 2012Q3

REPORT INFORMATION
  Report Type: 
  Country: None (occurrence: None)
  Receive Date: 20120824
  Receipt Date: 20120817
  Transmission Date: 20120928
  Serious: Yes (Hospitalization, Other)
  Sender: FDA-Public Use
  Company Number: PHEH2012US005724

PATIENT
  Sex: Female

DRUGS (1)
  1. AREDIA [Suspect]
     Indication: HYPERCALCAEMIA
     Dosage: 90 MG,
     Route: 042

REACTIONS (30)
  - ENDOCARDITIS [None]
  - EXOSTOSIS [None]
  - MULTIPLE MYELOMA [None]
  - GASTROINTESTINAL HAEMORRHAGE [None]
  - CHOLECYSTITIS [None]
  - COMPRESSION FRACTURE [None]
  - OSTEORADIONECROSIS [None]
  - ABSCESS NECK [None]
  - PAIN IN JAW [None]
  - GRANULOMA [None]
  - NECK PAIN [None]
  - CYST [None]
  - RIB FRACTURE [None]
  - CONDUCTIVE DEAFNESS [None]
  - INTERVERTEBRAL DISC SPACE NARROWING [None]
  - INTERVERTEBRAL DISC DEGENERATION [None]
  - INFLAMMATORY BOWEL DISEASE [None]
  - FACET JOINT SYNDROME [None]
  - VISION BLURRED [None]
  - SWELLING [None]
  - TINNITUS [None]
  - PLEURAL EFFUSION [None]
  - ATELECTASIS [None]
  - OSTEOLYSIS [None]
  - MASS [None]
  - CONSTIPATION [None]
  - ABSCESS JAW [None]
  - INFLAMMATION [None]
  - PULMONARY CALCIFICATION [None]
  - PAIN IN EXTREMITY [None]
